FAERS Safety Report 18479990 (Version 2)
Quarter: 2021Q1

REPORT INFORMATION
  Report Type: Spontaneous
  Country: LY (occurrence: LY)
  Receive Date: 20201109
  Receipt Date: 20210122
  Transmission Date: 20210419
  Serious: Yes (Other)
  Sender: FDA-Public Use
  Company Number: LY-AMGEN-LBYSP2020154672

PATIENT
  Age: 42 Year
  Sex: Male
  Weight: 68 kg

DRUGS (4)
  1. IRINOTECAN [Concomitant]
     Active Substance: IRINOTECAN
     Dosage: 313 MILLIGRAM, Q2WK
     Dates: start: 20200804
  2. FOLINIC ACID [Concomitant]
     Active Substance: LEUCOVORIN
     Dosage: 696 MILLIGRAM, Q2WK
     Dates: start: 20200804
  3. VECTIBIX [Suspect]
     Active Substance: PANITUMUMAB
     Indication: COLORECTAL CANCER METASTATIC
     Dosage: 408 MILLIGRAM, Q2WK (16?17 MG/KG)
     Route: 065
     Dates: start: 20200804
  4. 5?FU [FLUOROURACIL] [Concomitant]
     Active Substance: FLUOROURACIL
     Dosage: 696 MILLIGRAM, Q2WK
     Dates: start: 20200804

REACTIONS (4)
  - Overdose [Unknown]
  - Rash [Recovered/Resolved]
  - Neutropenia [Not Recovered/Not Resolved]
  - Fatigue [Recovered/Resolved]

NARRATIVE: CASE EVENT DATE: 20200923
